FAERS Safety Report 10086475 (Version 2)
Quarter: 2014Q2

REPORT INFORMATION
  Report Type: Spontaneous
  Country: BR (occurrence: BR)
  Receive Date: 20140418
  Receipt Date: 20140418
  Transmission Date: 20141212
  Serious: Yes (Hospitalization)
  Sender: FDA-Public Use
  Company Number: BR-DSJP-DSJ-2014-04559

PATIENT
  Sex: 0

DRUGS (5)
  1. AMLODIPINE AND OLMESARTAN MEDOXOMIL [Suspect]
     Indication: HYPERTENSION
     Dosage: 20/5MG, QD
     Route: 048
     Dates: start: 2013
  2. CITALOPRAM [Concomitant]
     Dosage: UNKNOWN
     Route: 065
  3. OMEPRAZOLE [Concomitant]
     Dosage: UNKNOWN
     Route: 065
  4. STRONTIOM RANELATE [Concomitant]
     Dosage: UNKNOWN
     Route: 065
  5. BROMAZEPAM [Concomitant]
     Dosage: (EVENTUALLY)(DOSES UNKNOWN)
     Route: 065

REACTIONS (6)
  - Femur fracture [Recovered/Resolved with Sequelae]
  - Drug administration error [Unknown]
  - Fall [Recovered/Resolved]
  - Thyroid disorder [Unknown]
  - Dysstasia [Not Recovered/Not Resolved]
  - Urinary tract infection [Recovered/Resolved]
